FAERS Safety Report 8496511-2 (Version None)
Quarter: 2012Q3

REPORT INFORMATION
  Report Type: 
  Country: None (occurrence: None)
  Receive Date: 20120709
  Receipt Date: 20120702
  Transmission Date: 20120928
  Serious: Yes (Hospitalization)
  Sender: FDA-Public Use
  Company Number: US-JNJFOC-20120701081

PATIENT
  Sex: Male
  Weight: 118.39 kg

DRUGS (2)
  1. REMICADE [Suspect]
     Indication: RHEUMATOID ARTHRITIS
     Route: 042
     Dates: end: 20120501
  2. ALL OTHER THERAPEUTICS [Concomitant]
     Route: 065

REACTIONS (2)
  - FATIGUE [None]
  - PROSTATE CANCER [None]
